FAERS Safety Report 10216707 (Version 1)
Quarter: 2014Q2

REPORT INFORMATION
  Report Type: Spontaneous
  Country: US (occurrence: US)
  Receive Date: 20140604
  Receipt Date: 20140604
  Transmission Date: 20141212
  Serious: Yes (Hospitalization)
  Sender: FDA-Public Use
  Company Number: US-JNJFOC-20140518320

PATIENT
  Age: 51 Year
  Sex: Male
  Weight: 110.68 kg

DRUGS (7)
  1. INVOKANA [Suspect]
     Indication: TYPE 2 DIABETES MELLITUS
     Route: 048
     Dates: start: 20140110, end: 20140522
  2. ASPIRIN [Concomitant]
     Indication: CARDIOVASCULAR EVENT PROPHYLAXIS
     Route: 048
  3. TENORMIN [Concomitant]
     Indication: HYPERTENSION
     Route: 048
  4. LIPITOR [Concomitant]
     Indication: HYPERLIPIDAEMIA
     Route: 048
  5. FISH OIL [Concomitant]
     Indication: HYPERLIPIDAEMIA
     Route: 048
  6. GLUCOPHAGE [Concomitant]
     Indication: TYPE 2 DIABETES MELLITUS
     Route: 048
  7. TESTOSTERONE [Concomitant]
     Indication: HYPOGONADISM
     Route: 030
     Dates: start: 2013, end: 2014

REACTIONS (3)
  - Pancreatitis [Recovered/Resolved]
  - Lipase increased [Recovered/Resolved]
  - Abdominal pain [Recovered/Resolved]
